FAERS Safety Report 5217798-5 (Version None)
Quarter: 2007Q1

REPORT INFORMATION
  Report Type: 
  Country: None (occurrence: None)
  Receive Date: 20070124
  Receipt Date: 20061218
  Transmission Date: 20070707
  Serious: Yes (Other)
  Sender: FDA-Public Use
  Company Number: US-GILEAD-2006-0010907

PATIENT
  Age: 43 Year
  Sex: Male

DRUGS (5)
  1. EMTRICITABINE [Suspect]
     Indication: HIV INFECTION
     Dates: start: 20050101, end: 20050101
  2. TENOFOVIR DISOPROXIL FUMARATE [Suspect]
     Indication: HIV INFECTION
     Dates: start: 20050101, end: 20050101
  3. ABACAVIR [Suspect]
     Indication: HIV INFECTION
     Dates: start: 20050101, end: 20050101
  4. ATAZANAVIR [Suspect]
     Indication: HIV INFECTION
     Dates: start: 20050101, end: 20050101
  5. RITONAVIR [Suspect]
     Indication: HIV INFECTION
     Dates: start: 20050101, end: 20050101

REACTIONS (1)
  - IMMUNE RECONSTITUTION SYNDROME [None]
